FAERS Safety Report 5191048-0 (Version None)
Quarter: 2006Q4

REPORT INFORMATION
  Report Type: 
  Country: None (occurrence: None)
  Receive Date: 20061226
  Receipt Date: 20061213
  Transmission Date: 20070319
  Serious: Yes (Other)
  Sender: FDA-Public Use
  Company Number: 2006GB02313

PATIENT
  Age: 63 Year
  Sex: Female

DRUGS (9)
  1. LIDOCAINE [Suspect]
     Indication: LOCAL ANAESTHESIA
     Route: 053
     Dates: start: 20061103, end: 20061103
  2. BOTOX [Suspect]
     Indication: FACE LIFT
     Dates: start: 20061103, end: 20061103
  3. HYALURONIC ACID [Suspect]
     Indication: SURGERY
     Dates: start: 20061103, end: 20061103
  4. EMLA [Concomitant]
     Indication: LOCAL ANAESTHESIA
     Route: 061
     Dates: start: 20061103
  5. PREMARIN [Concomitant]
     Indication: HORMONE REPLACEMENT THERAPY
  6. VENTOLIN [Concomitant]
     Indication: ASTHMA
  7. DIURETIC [Concomitant]
     Indication: HYPERTENSION
  8. RESYLANE LIPP [Concomitant]
     Indication: LIP OPERATION
  9. ASTHMA MEDICATION [Concomitant]
     Indication: PROPHYLAXIS

REACTIONS (3)
  - CONTUSION [None]
  - FACE OEDEMA [None]
  - HYPERSENSITIVITY [None]
